FAERS Safety Report 23128525 (Version 6)
Quarter: 2025Q2

REPORT INFORMATION
  Report Type: Spontaneous
  Country: US (occurrence: US)
  Receive Date: 20231031
  Receipt Date: 20250505
  Transmission Date: 20250716
  Serious: Yes (Hospitalization, Other)
  Sender: SANOFI AVENTIS
  Company Number: US-SA-SAC20231030002365

PATIENT
  Age: 68 Year
  Sex: Female
  Weight: 40.816 kg

DRUGS (21)
  1. DUPIXENT [Suspect]
     Active Substance: DUPILUMAB
     Indication: Asthma
     Dosage: 300 MG, QOW
     Route: 058
     Dates: start: 202202
  2. DUPIXENT [Suspect]
     Active Substance: DUPILUMAB
     Indication: Chronic obstructive pulmonary disease
  3. FISH OIL [Concomitant]
     Active Substance: FISH OIL
  4. ATORVASTATIN CALCIUM [Concomitant]
     Active Substance: ATORVASTATIN CALCIUM
  5. CETIRIZINE HYDROCHLORIDE [Concomitant]
     Active Substance: CETIRIZINE HYDROCHLORIDE
  6. ELIQUIS [Concomitant]
     Active Substance: APIXABAN
  7. PROPAFENONE HCL [Concomitant]
     Active Substance: PROPAFENONE HYDROCHLORIDE
  8. LEVALBUTEROL [Concomitant]
     Active Substance: LEVALBUTEROL
  9. MELATONIN [Concomitant]
     Active Substance: MELATONIN
  10. ADVAIR HFA [Concomitant]
     Active Substance: FLUTICASONE PROPIONATE\SALMETEROL XINAFOATE
  11. INCRUSE ELLIPTA [Concomitant]
     Active Substance: UMECLIDINIUM BROMIDE
  12. CARDIZEM CD [Concomitant]
     Active Substance: DILTIAZEM HYDROCHLORIDE
  13. VITAMIN C [Concomitant]
     Active Substance: ASCORBIC ACID
  14. CALCIUM D3 [CALCIUM CARBONATE;CALCIUM GLUCONATE;CALCIUM PHOSPHATE;COLE [Concomitant]
  15. COENZYME Q10 [Concomitant]
     Active Substance: DIETARY SUPPLEMENT\UBIDECARENONE
  16. PROPAFENONE [Concomitant]
     Active Substance: PROPAFENONE
  17. METHOCARBAMOL [Concomitant]
     Active Substance: METHOCARBAMOL
  18. BUDESONIDE\FORMOTEROL [Concomitant]
     Active Substance: BUDESONIDE\FORMOTEROL
  19. DILTIAZEM [Concomitant]
     Active Substance: DILTIAZEM
  20. SINGULAIR [Concomitant]
     Active Substance: MONTELUKAST SODIUM
  21. VITAMINS [Concomitant]
     Active Substance: VITAMINS

REACTIONS (18)
  - Device breakage [Unknown]
  - Lung neoplasm malignant [Not Recovered/Not Resolved]
  - Chemical poisoning [Unknown]
  - Terminal state [Unknown]
  - Pneumonia [Unknown]
  - Dyspnoea [Not Recovered/Not Resolved]
  - Pelvic pain [Unknown]
  - Uterine disorder [Unknown]
  - Pharyngeal cyst [Not Recovered/Not Resolved]
  - Speech disorder [Not Recovered/Not Resolved]
  - Malaise [Not Recovered/Not Resolved]
  - Illness [Unknown]
  - Decreased immune responsiveness [Unknown]
  - Memory impairment [Not Recovered/Not Resolved]
  - Eosinophil count increased [Unknown]
  - Chronic obstructive pulmonary disease [Not Recovered/Not Resolved]
  - Injection site pain [Unknown]
  - Injection site swelling [Recovered/Resolved]

NARRATIVE: CASE EVENT DATE: 20240327
